FAERS Safety Report 25997378 (Version 2)
Quarter: 2025Q4

REPORT INFORMATION
  Report Type: Spontaneous
  Country: EU (occurrence: EU)
  Receive Date: 20251104
  Receipt Date: 20251128
  Transmission Date: 20260117
  Serious: Yes (Life-Threatening, Hospitalization, Other)
  Sender: SANOFI AVENTIS
  Company Number: EU-SA-2025SA325179

PATIENT
  Age: 55 Year
  Sex: Male
  Weight: 78 kg

DRUGS (21)
  1. DUPIXENT [Suspect]
     Active Substance: DUPILUMAB
     Indication: Asthma
     Dosage: 600 MG, 1X
     Route: 058
     Dates: start: 20250716, end: 20250716
  2. DUPIXENT [Suspect]
     Active Substance: DUPILUMAB
     Indication: Chronic rhinosinusitis with nasal polyps
     Dosage: 300 MG, QOW
     Route: 058
     Dates: start: 2025, end: 20250910
  3. ENOXAPARIN SODIUM [Concomitant]
     Active Substance: ENOXAPARIN SODIUM
     Dosage: 40 MG, QD
     Route: 058
  4. TELMISARTAN [Concomitant]
     Active Substance: TELMISARTAN
     Dosage: 40 MG, QD
     Route: 048
  5. LERCANIDIPINE [Concomitant]
     Active Substance: LERCANIDIPINE
     Dosage: 10 MG, BID
     Route: 048
  6. TORSEMIDE [Concomitant]
     Active Substance: TORSEMIDE
     Dosage: 5 MG, QD
     Route: 048
  7. IVABRADINE [Concomitant]
     Active Substance: IVABRADINE
     Dosage: 5 MG, BID
     Route: 048
  8. ROSUVASTATIN CALCIUM [Concomitant]
     Active Substance: ROSUVASTATIN CALCIUM
     Dosage: 20 MG, QD
     Route: 048
  9. RYALTRIS [Concomitant]
     Active Substance: MOMETASONE FUROATE MONOHYDRATE\OLOPATADINE HYDROCHLORIDE
     Dosage: 2?1 ACTUATION
     Route: 055
  10. BECLOMETHASONE DIPROPIONATE\FORMOTEROL FUMARATE\GLYCOPYRROLATE [Concomitant]
     Active Substance: BECLOMETHASONE DIPROPIONATE\FORMOTEROL FUMARATE\GLYCOPYRROLATE
     Indication: Asthma
     Dosage: 2?2 PUFFS
     Route: 055
  11. FOLIC ACID [Concomitant]
     Active Substance: FOLIC ACID
     Dosage: 15 MG, QW
  12. METHOTREXATE SODIUM [Concomitant]
     Active Substance: METHOTREXATE SODIUM
     Dosage: 1 DF, QW
  13. ACTELSAR [Concomitant]
     Dosage: TABLET MORNING
  14. DESLORATADINE [Concomitant]
     Active Substance: DESLORATADINE
     Indication: Rhinitis allergic
     Dosage: TABLET IN THE MORNING
     Route: 048
  15. LERCANIDIPINE [Concomitant]
     Active Substance: LERCANIDIPINE
     Dosage: 1 TABLET IN THE EVENING
  16. MONTELUKAST SODIUM [Concomitant]
     Active Substance: MONTELUKAST SODIUM
     Indication: Asthma
     Dosage: TABLET IN THE EVENING
     Route: 048
  17. EZEHRON DUO [Concomitant]
  18. BISOPROLOL [Concomitant]
     Active Substance: BISOPROLOL
     Dosage: IN THE MORNING
  19. VITAMIN D3 [Concomitant]
     Active Substance: CHOLECALCIFEROL
     Dosage: 4000 IU/DAY
  20. CALPEROS VITA D3 [Concomitant]
  21. METHOTREXATE [Concomitant]
     Active Substance: METHOTREXATE
     Dosage: 20 MG

REACTIONS (25)
  - Eosinophilic granulomatosis with polyangiitis [Recovering/Resolving]
  - Eosinophilia [Recovering/Resolving]
  - Myopericarditis [Recovering/Resolving]
  - Dyspnoea [Recovering/Resolving]
  - Chest pain [Recovering/Resolving]
  - Rhinorrhoea [Unknown]
  - Malaise [Unknown]
  - SARS-CoV-2 test positive [Unknown]
  - Sinus tachycardia [Unknown]
  - Ventricular hypertrophy [Unknown]
  - Electrocardiogram abnormal [Unknown]
  - Hyperlipidaemia [Unknown]
  - Night sweats [Unknown]
  - Hypertension [Unknown]
  - Asthenia [Unknown]
  - Nausea [Unknown]
  - Chills [Unknown]
  - Hyperhidrosis [Unknown]
  - Weight decreased [Unknown]
  - Tachycardia [Unknown]
  - Hepatic steatosis [Unknown]
  - Troponin I increased [Unknown]
  - Leukocytosis [Unknown]
  - Normocytic anaemia [Unknown]
  - Pruritus [Unknown]

NARRATIVE: CASE EVENT DATE: 20250101
